FAERS Safety Report 21624448 (Version 1)
Quarter: 2022Q4

REPORT INFORMATION
  Report Type: Spontaneous
  Country: US (occurrence: US)
  Receive Date: 20221121
  Receipt Date: 20221121
  Transmission Date: 20230113
  Serious: Yes (Other)
  Sender: FDA-Public Use
  Company Number: US-BRACCO-2021US04496

PATIENT
  Age: 58 Year
  Sex: Female

DRUGS (3)
  1. LUMASON [Suspect]
     Active Substance: SULFUR HEXAFLUORIDE
     Indication: Echocardiogram
     Dosage: 2-3 ML, SINGLE
     Route: 042
     Dates: start: 20211020, end: 20211020
  2. LUMASON [Suspect]
     Active Substance: SULFUR HEXAFLUORIDE
     Indication: Echocardiogram
     Dosage: 2-3 ML, SINGLE
     Route: 042
     Dates: start: 20211020, end: 20211020
  3. LUMASON [Suspect]
     Active Substance: SULFUR HEXAFLUORIDE
     Indication: Echocardiogram
     Dosage: 2-3 ML, SINGLE
     Route: 042
     Dates: start: 20211020, end: 20211020

REACTIONS (5)
  - Unresponsive to stimuli [Unknown]
  - Cough [Unknown]
  - Erythema [Unknown]
  - Pharyngeal paraesthesia [Unknown]
  - Skin discolouration [Unknown]

NARRATIVE: CASE EVENT DATE: 20211020
